FAERS Safety Report 9056752 (Version 2)
Quarter: 2013Q2

REPORT INFORMATION
  Report Type: Spontaneous
  Country: US (occurrence: US)
  Receive Date: 20130204
  Receipt Date: 20130404
  Transmission Date: 20140414
  Serious: No
  Sender: FDA-Public Use
  Company Number: US-AMGEN-USASP2013005637

PATIENT
  Age: 64 Year
  Sex: Female

DRUGS (6)
  1. ENBREL [Suspect]
     Indication: PSORIATIC ARTHROPATHY
     Dosage: 50 MG, QWK
     Route: 058
     Dates: start: 20120612, end: 20130125
  2. CYMBALTA [Concomitant]
     Indication: DEPRESSION
     Dosage: 60 MG, QD
     Route: 048
  3. FOLIC ACID [Concomitant]
     Dosage: 1 MG, QD
     Route: 048
  4. ISONIAZID [Concomitant]
     Indication: TUBERCULOSIS
     Dosage: 300 MG, QD
     Route: 048
  5. LIPITOR [Concomitant]
     Indication: HYPERCHOLESTEROLAEMIA
     Dosage: UNK
  6. METHOTREXATE [Concomitant]
     Dosage: 2.5 MG,7 TAB/WEEK
     Route: 048

REACTIONS (6)
  - Productive cough [Recovering/Resolving]
  - Upper-airway cough syndrome [Recovering/Resolving]
  - Pyrexia [Recovering/Resolving]
  - Oropharyngeal pain [Recovering/Resolving]
  - Laryngitis [Recovering/Resolving]
  - Injection site pain [Not Recovered/Not Resolved]
